FAERS Safety Report 12584362 (Version 1)
Quarter: 2016Q3

REPORT INFORMATION
  Report Type: Spontaneous
  Country: IT (occurrence: IT)
  Receive Date: 20160722
  Receipt Date: 20160722
  Transmission Date: 20161109
  Serious: Yes (Other)
  Sender: FDA-Public Use
  Company Number: IT-MYLANLABS-2015M1044610

PATIENT

DRUGS (2)
  1. CISPLATIN. [Suspect]
     Active Substance: CISPLATIN
     Indication: EPENDYMOMA MALIGNANT
     Dosage: 60 MIN INFUSION ON DAY 1 AT DOSE OF 75 MG/M2 WITH HYDRATION; TREATMENT REPEATED EVERY 21 DAYS
     Route: 041
  2. TEMOZOLOMIDE. [Suspect]
     Active Substance: TEMOZOLOMIDE
     Indication: EPENDYMOMA MALIGNANT
     Dosage: 5 CONSECUTIVE DAYS AT 150MG/M2 SINGLE DOSE; TREATMENT REPEATED EVERY 21 DAYS
     Route: 048

REACTIONS (6)
  - Anaemia [Unknown]
  - Fatigue [Unknown]
  - Alopecia [Unknown]
  - Nephropathy toxic [Unknown]
  - Thrombocytopenia [Unknown]
  - Nausea [Unknown]
